FAERS Safety Report 19149534 (Version 1)
Quarter: 2021Q2

REPORT INFORMATION
  Report Type: Other
  Country: DE (occurrence: DE)
  Receive Date: 20210416
  Receipt Date: 20210416
  Transmission Date: 20210717
  Serious: Yes (Death, Hospitalization)
  Sender: FDA-Public Use
  Company Number: DE-VALIDUS PHARMACEUTICALS LLC-DE-2021VAL001120

PATIENT

DRUGS (9)
  1. TRACLEER [Suspect]
     Active Substance: BOSENTAN
     Indication: PRODUCT USED FOR UNKNOWN INDICATION
     Dosage: 125 MG, QD (125 MG,1 D)
     Route: 048
  2. ROCALTROL [Suspect]
     Active Substance: CALCITRIOL
     Indication: PRODUCT USED FOR UNKNOWN INDICATION
     Dosage: 0.25 ?G, UNK
     Route: 048
  3. GLUCOBAY [Suspect]
     Active Substance: ACARBOSE
     Indication: PRODUCT USED FOR UNKNOWN INDICATION
     Dosage: 300 MG, QD (300 MG,1 D)
     Route: 048
  4. DECORTIN H [Suspect]
     Active Substance: PREDNISOLONE
     Indication: PRODUCT USED FOR UNKNOWN INDICATION
     Dosage: 5 MG, QD (5 MG,1 D)
     Route: 048
  5. CODIPRONT MONO                     /00012607/ [Suspect]
     Active Substance: CODEINE POLISTIREX
     Indication: PRODUCT USED FOR UNKNOWN INDICATION
     Dosage: 60 GTT, QD (60 GTT,1 D)
     Route: 048
  6. MARCUMAR [Suspect]
     Active Substance: PHENPROCOUMON
     Indication: PRODUCT USED FOR UNKNOWN INDICATION
     Dosage: UNK, QD (1 D)
     Route: 048
  7. TORASEMIDE [Suspect]
     Active Substance: TORSEMIDE
     Indication: PRODUCT USED FOR UNKNOWN INDICATION
     Dosage: 10 MG, QD (10 MG,1 D)
     Route: 048
  8. FENOFIBRATE. [Suspect]
     Active Substance: FENOFIBRATE
     Indication: PRODUCT USED FOR UNKNOWN INDICATION
     Dosage: 200 MG, QD (200 MG,1 D)
     Route: 048
  9. AMARYL [Suspect]
     Active Substance: GLIMEPIRIDE
     Indication: PRODUCT USED FOR UNKNOWN INDICATION
     Dosage: 2 MG, QD (2 MG,1 D)
     Route: 048

REACTIONS (14)
  - Hepatic failure [Unknown]
  - Metabolic acidosis [Unknown]
  - Coagulopathy [Fatal]
  - Cardiac arrest [Fatal]
  - Renal failure [Unknown]
  - Blood potassium increased [Unknown]
  - White blood cell count increased [Unknown]
  - Somnolence [Unknown]
  - Coagulation test abnormal [Unknown]
  - Abdominal pain lower [Unknown]
  - Prothrombin time prolonged [Unknown]
  - Inflammation [Unknown]
  - Anuria [Unknown]
  - Hypoglycaemia [Unknown]
